FAERS Safety Report 25818201 (Version 1)
Quarter: 2025Q3

REPORT INFORMATION
  Report Type: Spontaneous
  Country: EU (occurrence: EU)
  Receive Date: 20250918
  Receipt Date: 20250918
  Transmission Date: 20251021
  Serious: Yes (Other)
  Sender: NOVO NORDISK
  Company Number: EU-NOVOPROD-1522128

PATIENT
  Age: 53 Year
  Sex: Female

DRUGS (2)
  1. SAXENDA [Suspect]
     Active Substance: LIRAGLUTIDE
     Indication: Product used for unknown indication
     Dates: start: 20240601
  2. DOLIPRANE [Suspect]
     Active Substance: ACETAMINOPHEN
     Indication: Musculoskeletal discomfort
     Dates: start: 202506

REACTIONS (2)
  - Liver disorder [Unknown]
  - Inappropriate schedule of product administration [Not Recovered/Not Resolved]

NARRATIVE: CASE EVENT DATE: 20240601
